FAERS Safety Report 17470536 (Version 1)
Quarter: 2020Q1

REPORT INFORMATION
  Report Type: Spontaneous
  Country: US (occurrence: US)
  Receive Date: 20200227
  Receipt Date: 20200227
  Transmission Date: 20200409
  Serious: No
  Sender: FDA-Public Use
  Company Number: US-JAZZ-2019-US-012955

PATIENT
  Age: 45 Year
  Sex: Female

DRUGS (4)
  1. CLOZAPINE. [Suspect]
     Active Substance: CLOZAPINE
     Dosage: 150 MG/DAY
     Route: 048
  2. CLOZAPINE. [Suspect]
     Active Substance: CLOZAPINE
     Dosage: 300 MG/DAY
     Route: 048
  3. CLOZAPINE. [Suspect]
     Active Substance: CLOZAPINE
     Indication: SCHIZOPHRENIA
     Dosage: 300 MG/DAY
     Route: 048
  4. CIPROFLOXACIN. [Suspect]
     Active Substance: CIPROFLOXACIN
     Indication: URINARY TRACT INFECTION
     Dosage: 500 MG FOR TWO WEEKS

REACTIONS (7)
  - Fatigue [Recovered/Resolved]
  - Sedation [Recovered/Resolved]
  - Drug ineffective [Recovered/Resolved]
  - Vision blurred [Recovered/Resolved]
  - Salivary hypersecretion [Recovered/Resolved]
  - Dizziness [Recovered/Resolved]
  - Drug level increased [Recovering/Resolving]
